FAERS Safety Report 8885195 (Version 1)
Quarter: 2012Q4

REPORT INFORMATION
  Report Type: 
  Country: US (occurrence: US)
  Receive Date: 20121102
  Receipt Date: 20121102
  Transmission Date: 20130627
  Serious: No
  Sender: FDA-Public Use
  Company Number: US-PFIZER INC-2012271310

PATIENT
  Age: 72 Year
  Sex: Female
  Weight: 90.7 kg

DRUGS (2)
  1. CENTRUM [Suspect]
     Indication: VITAMIN SUPPLEMENTATION
     Dosage: one tablet daily
     Route: 048
     Dates: start: 2011, end: 201207
  2. LEVOTHYROXINE SODIUM [Suspect]
     Indication: HYPOTHYROIDISM
     Dosage: 25 mg, daily

REACTIONS (4)
  - Expired drug administered [Unknown]
  - Drug ineffective [Unknown]
  - Foreign body [Recovered/Resolved]
  - Dysphagia [Recovered/Resolved]
